FAERS Safety Report 13612838 (Version 1)
Quarter: 2017Q2

REPORT INFORMATION
  Report Type: Spontaneous
  Country: CA (occurrence: CA)
  Receive Date: 20170605
  Receipt Date: 20170605
  Transmission Date: 20170830
  Serious: Yes (Other)
  Sender: FDA-Public Use
  Company Number: CA-CELGENEUS-CAN-20170507538

PATIENT
  Age: 35 Year
  Sex: Female

DRUGS (2)
  1. GEMCITABINE [Suspect]
     Active Substance: GEMCITABINE\GEMCITABINE HYDROCHLORIDE
     Indication: PANCREATIC CARCINOMA METASTATIC
     Route: 065
     Dates: start: 201406, end: 201506
  2. ABRAXANE [Suspect]
     Active Substance: PACLITAXEL
     Indication: PANCREATIC CARCINOMA METASTATIC
     Route: 041
     Dates: start: 201406, end: 201506

REACTIONS (5)
  - Pancreatic carcinoma metastatic [Unknown]
  - Fatigue [Unknown]
  - Febrile neutropenia [Unknown]
  - Endometrial adenocarcinoma [Unknown]
  - Neuropathy peripheral [Unknown]
